FAERS Safety Report 7754711-0 (Version None)
Quarter: 2011Q3

REPORT INFORMATION
  Report Type: 
  Country: None (occurrence: None)
  Receive Date: 20110915
  Receipt Date: 20110624
  Transmission Date: 20111222
  Serious: Yes (Hospitalization, Other)
  Sender: FDA-Public Use
  Company Number: PHHY2011BR39154

PATIENT
  Sex: Female

DRUGS (4)
  1. CLONAZEPAM [Concomitant]
     Indication: PANIC DISORDER
     Dosage: 1 DF, QD
  2. FORMOTEROL FUMARATE [Suspect]
     Indication: BRONCHITIS
     Dosage: 1 DF, QD
  3. TEGRETOL [Concomitant]
     Indication: EPILEPSY
     Dosage: 2 DF, QD
     Route: 048
  4. INSULIN [Concomitant]
     Indication: DIABETES MELLITUS
     Dosage: 34UI IN THE MORNING AND 2UI AFTER THE LUNCH

REACTIONS (4)
  - RESPIRATORY DISORDER [None]
  - PNEUMONIA [None]
  - BRONCHITIS [None]
  - BLOOD GLUCOSE INCREASED [None]
